FAERS Safety Report 6032623-0 (Version None)
Quarter: 2009Q1

REPORT INFORMATION
  Report Type: 
  Country: None (occurrence: None)
  Receive Date: 20090109
  Receipt Date: 20090107
  Transmission Date: 20090719
  Serious: Yes (Other)
  Sender: FDA-Public Use
  Company Number: PHHY2008DE29374

PATIENT
  Sex: Female

DRUGS (1)
  1. TEGRETOL [Suspect]
     Dosage: 100 MG/ 5 ML
     Route: 048

REACTIONS (4)
  - DRUG LEVEL INCREASED [None]
  - OVERDOSE [None]
  - PARESIS [None]
  - THERAPEUTIC AGENT TOXICITY [None]
